FAERS Safety Report 16950991 (Version 1)
Quarter: 2019Q4

REPORT INFORMATION
  Report Type: Spontaneous
  Country: US (occurrence: US)
  Receive Date: 20191023
  Receipt Date: 20191023
  Transmission Date: 20200122
  Serious: No
  Sender: FDA-Public Use
  Company Number: US-MYLANLABS-2019M1096166

PATIENT
  Age: 58 Year
  Sex: Female
  Weight: 92 kg

DRUGS (4)
  1. PRILOSEC [Concomitant]
     Active Substance: OMEPRAZOLE MAGNESIUM
  2. DIGITEK [Suspect]
     Active Substance: DIGOXIN
     Indication: HEART RATE IRREGULAR
     Dosage: 0.25 MILLIGRAM, QD
     Dates: start: 20191009, end: 20191009
  3. ELIQUIS [Concomitant]
     Active Substance: APIXABAN
  4. LOSARTAN. [Concomitant]
     Active Substance: LOSARTAN

REACTIONS (3)
  - Chest pain [Not Recovered/Not Resolved]
  - Heart rate increased [Not Recovered/Not Resolved]
  - Palpitations [Not Recovered/Not Resolved]

NARRATIVE: CASE EVENT DATE: 20191009
